FAERS Safety Report 4668185-X (Version None)
Quarter: 2005Q2

REPORT INFORMATION
  Report Type: 
  Country: None (occurrence: None)
  Receive Date: 20050523
  Receipt Date: 20050202
  Transmission Date: 20051028
  Serious: Yes (Other)
  Sender: FDA-Public Use
  Company Number: PHEH2005US01619

PATIENT
  Age: 59 Year
  Sex: Male

DRUGS (1)
  1. ZOMETA [Suspect]
     Indication: MULTIPLE MYELOMA
     Dosage: 4 MG MONTHLY
     Dates: start: 20040601, end: 20040901

REACTIONS (2)
  - ORAL SOFT TISSUE DISORDER [None]
  - OSTEONECROSIS [None]
